FAERS Safety Report 16027860 (Version 2)
Quarter: 2019Q2

REPORT INFORMATION
  Report Type: Spontaneous
  Country: US (occurrence: US)
  Receive Date: 20190304
  Receipt Date: 20190628
  Transmission Date: 20190711
  Serious: No
  Sender: FDA-Public Use
  Company Number: US-BIOGEN-2019BI00702749

PATIENT
  Sex: Male
  Weight: 103.06 kg

DRUGS (17)
  1. TECFIDERA [Suspect]
     Active Substance: DIMETHYL FUMARATE
     Route: 048
     Dates: start: 20190429
  2. PROTONIX [Concomitant]
     Active Substance: PANTOPRAZOLE SODIUM
     Route: 048
  3. CYMBALTA [Concomitant]
     Active Substance: DULOXETINE HYDROCHLORIDE
     Route: 048
  4. TIZANIDINE HCL [Concomitant]
     Active Substance: TIZANIDINE HYDROCHLORIDE
     Indication: MULTIPLE SCLEROSIS
     Route: 048
  5. CLONAZEPAM. [Concomitant]
     Active Substance: CLONAZEPAM
     Route: 065
  6. TECFIDERA [Suspect]
     Active Substance: DIMETHYL FUMARATE
     Indication: MULTIPLE SCLEROSIS
     Dosage: STARTING DOSE
     Route: 048
     Dates: start: 201706, end: 201706
  7. XANAX [Concomitant]
     Active Substance: ALPRAZOLAM
     Route: 048
  8. PROMETHAZINE [Concomitant]
     Active Substance: PROMETHAZINE\PROMETHAZINE HYDROCHLORIDE
     Route: 065
  9. TESTOSTERONE. [Concomitant]
     Active Substance: TESTOSTERONE
     Dosage: SOLUTION 1 ML
     Route: 030
  10. OXYCODONE [Concomitant]
     Active Substance: OXYCODONE
     Route: 048
  11. OPANA [Concomitant]
     Active Substance: OXYMORPHONE HYDROCHLORIDE
     Route: 048
  12. ARIMIDEX [Concomitant]
     Active Substance: ANASTROZOLE
     Route: 048
  13. SOMA [Concomitant]
     Active Substance: CARISOPRODOL
     Route: 048
  14. TECFIDERA [Suspect]
     Active Substance: DIMETHYL FUMARATE
     Dosage: MAINTENANCE DOSE
     Route: 048
     Dates: start: 201706, end: 201710
  15. HYDROCORTISONE. [Concomitant]
     Active Substance: HYDROCORTISONE
     Route: 048
  16. TECFIDERA [Suspect]
     Active Substance: DIMETHYL FUMARATE
     Dosage: STARTING DOSE
     Route: 048
     Dates: start: 201804, end: 201804
  17. TECFIDERA [Suspect]
     Active Substance: DIMETHYL FUMARATE
     Dosage: MAINTENANCE DOSE
     Route: 048
     Dates: start: 201804

REACTIONS (7)
  - Adrenal insufficiency [Unknown]
  - Multiple sclerosis [Unknown]
  - Flushing [Not Recovered/Not Resolved]
  - Product dose omission [Unknown]
  - Growth hormone deficiency [Unknown]
  - Vitamin D deficiency [Unknown]
  - Burning sensation [Recovered/Resolved]

NARRATIVE: CASE EVENT DATE: 2017
